FAERS Safety Report 7098494-9 (Version None)
Quarter: 2010Q4

REPORT INFORMATION
  Report Type: 
  Country: None (occurrence: None)
  Receive Date: 20101110
  Receipt Date: 20101110
  Transmission Date: 20110411
  Serious: No
  Sender: FDA-Public Use
  Company Number: None

PATIENT
  Sex: Female
  Weight: 49 kg

DRUGS (1)
  1. FERAHEME [Suspect]
     Indication: IRON DEFICIENCY ANAEMIA
     Dosage: 510MG Q7DAYS IV
     Route: 042
     Dates: start: 20100406

REACTIONS (3)
  - BACK PAIN [None]
  - HEADACHE [None]
  - NERVOUSNESS [None]
